FAERS Safety Report 21937837 (Version 2)
Quarter: 2023Q1

REPORT INFORMATION
  Report Type: Spontaneous
  Country: US (occurrence: US)
  Receive Date: 20230201
  Receipt Date: 20230208
  Transmission Date: 20230417
  Serious: Yes (Hospitalization, Disabling, Other)
  Sender: FDA-Public Use
  Company Number: US-ALLERGAN-2302217US

PATIENT
  Sex: Male
  Weight: 83.914 kg

DRUGS (2)
  1. REFRESH PLUS [Suspect]
     Active Substance: CARBOXYMETHYLCELLULOSE SODIUM
     Indication: Dry eye
     Dosage: UNK, QD
     Route: 047
     Dates: start: 2012
  2. ELIQUIS [Concomitant]
     Active Substance: APIXABAN
     Indication: Coagulopathy
     Dosage: UNK

REACTIONS (9)
  - Choroid melanoma [Unknown]
  - Blindness unilateral [Unknown]
  - Macular degeneration [Unknown]
  - Cardiac ablation [Unknown]
  - Atrial fibrillation [Recovered/Resolved]
  - Heart rate increased [Recovered/Resolved]
  - Poor quality product administered [Unknown]
  - Visual impairment [Not Recovered/Not Resolved]
  - Product quality issue [Unknown]

NARRATIVE: CASE EVENT DATE: 20201001
